FAERS Safety Report 8309098-1 (Version None)
Quarter: 2012Q2

REPORT INFORMATION
  Report Type: 
  Country: None (occurrence: None)
  Receive Date: 20120424
  Receipt Date: 20120419
  Transmission Date: 20120825
  Serious: Yes (Hospitalization, Disabling)
  Sender: FDA-Public Use
  Company Number: CA-AMGEN-CANCT2012002028

PATIENT
  Age: 30 Year
  Sex: Female
  Weight: 84.3 kg

DRUGS (24)
  1. DECADRON [Concomitant]
     Route: 042
     Dates: start: 20111223, end: 20120224
  2. IBUPROFEN (ADVIL) [Concomitant]
     Indication: MIGRAINE
     Dosage: 400 MG, PRN
     Route: 048
     Dates: start: 19990615, end: 20120111
  3. KYTRIL [Concomitant]
     Dosage: 1 MG, UNK
     Route: 042
     Dates: start: 20111223, end: 20120224
  4. CLONAZEPAM [Concomitant]
     Indication: INSOMNIA
     Dosage: 0.5 MG, PRN
     Route: 048
     Dates: start: 20110615, end: 20111215
  5. SYNTHROID [Concomitant]
     Indication: HYPOTHYROIDISM
     Dosage: 0.025 MG, UNK
     Route: 048
     Dates: start: 20110615
  6. VITAMIN B COMPLEX CAP [Concomitant]
     Indication: PROPHYLAXIS
     Dosage: UNK UNK, QD
     Route: 048
     Dates: start: 20080101
  7. PEPCID [Concomitant]
     Dosage: 20 ML, UNK
     Route: 042
     Dates: start: 20110930, end: 20111216
  8. PROCHLORPERAZINE [Concomitant]
     Dosage: 10 MG, UNK
     Route: 048
     Dates: start: 20111224, end: 20120302
  9. CALCIUM [Concomitant]
     Dosage: 600 MG, BID
     Route: 048
     Dates: start: 20111006, end: 20120221
  10. NEULASTA [Concomitant]
     Dosage: 6 MG, UNK
     Route: 058
     Dates: start: 20111224, end: 20120225
  11. LYRICA [Concomitant]
     Indication: NEUROPATHY PERIPHERAL
     Dosage: 50 MG, PRN
     Dates: start: 20090101
  12. FLUOROURACIL [Concomitant]
     Dosage: 500 MG/M2, Q3WK
     Route: 042
     Dates: start: 20111223
  13. EMTEC [Concomitant]
     Dosage: 30 MG, UNK
     Route: 048
     Dates: start: 20111020, end: 20111225
  14. NAPROSYN [Concomitant]
     Indication: MIGRAINE
     Dosage: 500 UNK, UNK
     Route: 048
     Dates: start: 20100809, end: 20120102
  15. ZOFRAN [Concomitant]
     Dosage: 8 MG, UNK
     Route: 048
     Dates: start: 20111224, end: 20120228
  16. DENOSUMAB [Suspect]
     Indication: BREAST CANCER
     Dosage: 120 MG, Q3WK
     Route: 058
     Dates: start: 20111006, end: 20120201
  17. PACLITAXEL [Concomitant]
     Dosage: 80 MG/M2, QWK
     Route: 042
     Dates: start: 20110930, end: 20111216
  18. CYCLOPHOSPHAMIDE [Concomitant]
     Dosage: 500 MG/M2, Q3WK
     Route: 042
     Dates: start: 20111223
  19. DECADRON [Concomitant]
     Dosage: UNK
     Dates: start: 20110930, end: 20120228
  20. VITAMIN D [Concomitant]
     Dosage: UNK
     Route: 048
     Dates: start: 20111006, end: 20120221
  21. EPIRUBICIN [Concomitant]
     Dosage: 100 MG/M2, Q3WK
     Route: 042
     Dates: start: 20111223
  22. LUPRON DEPOT [Concomitant]
     Dosage: 3.75 MG, QMO
     Route: 030
     Dates: start: 20110922, end: 20111116
  23. CLARITIN [Concomitant]
     Dosage: 10 MG, UNK
     Route: 048
     Dates: start: 20111014, end: 20111216
  24. ATIVAN [Concomitant]
     Dosage: 1 MG, UNK
     Route: 048
     Dates: start: 20111020, end: 20120302

REACTIONS (1)
  - INTERVERTEBRAL DISC PROTRUSION [None]
